FAERS Safety Report 5940685-1 (Version None)
Quarter: 2008Q4

REPORT INFORMATION
  Report Type: 
  Country: None (occurrence: None)
  Receive Date: 20081104
  Receipt Date: 20081022
  Transmission Date: 20090506
  Serious: Yes (Other)
  Sender: FDA-Public Use
  Company Number: US-AMGEN-KDL303529

PATIENT
  Sex: Male

DRUGS (10)
  1. ARANESP [Suspect]
     Indication: ANAEMIA OF MALIGNANT DISEASE
     Route: 058
     Dates: start: 20080201, end: 20080611
  2. REVLIMID [Suspect]
     Dates: start: 20080601
  3. PROCRIT [Suspect]
     Indication: ANAEMIA OF MALIGNANT DISEASE
     Route: 042
     Dates: start: 20071030
  4. COREG [Concomitant]
  5. ALLOPURINOL [Concomitant]
  6. SPIRONOLACTONE [Concomitant]
  7. RITUXAN [Concomitant]
     Dates: start: 20080103, end: 20080501
  8. PREDNISONE TAB [Concomitant]
  9. FOLIC ACID [Concomitant]
  10. VITAMIN B-12 [Concomitant]

REACTIONS (4)
  - ANAEMIA [None]
  - EUTHYROID SICK SYNDROME [None]
  - PYREXIA [None]
  - THROMBOCYTOPENIA [None]
